FAERS Safety Report 7423584-8 (Version None)
Quarter: 2011Q2

REPORT INFORMATION
  Report Type: 
  Country: None (occurrence: None)
  Receive Date: 20110419
  Receipt Date: 20110411
  Transmission Date: 20111010
  Serious: Yes (Hospitalization)
  Sender: FDA-Public Use
  Company Number: US-SANOFI-AVENTIS-2011SA022806

PATIENT
  Age: 55 Year
  Sex: Male

DRUGS (3)
  1. AMBIEN [Suspect]
     Indication: SLEEP DISORDER
     Route: 048
     Dates: start: 20030318, end: 20030318
  2. ALCOHOL [Suspect]
     Dosage: HALF BOTTLE OF VODKA
     Route: 048
     Dates: start: 20030318, end: 20030318
  3. AMBIEN [Concomitant]
     Route: 048

REACTIONS (5)
  - UNRESPONSIVE TO STIMULI [None]
  - INTENTIONAL OVERDOSE [None]
  - SOMNOLENCE [None]
  - SUICIDE ATTEMPT [None]
  - DEPRESSION [None]
